FAERS Safety Report 20406625 (Version 2)
Quarter: 2022Q2

REPORT INFORMATION
  Report Type: Spontaneous
  Country: IT (occurrence: IT)
  Receive Date: 20220131
  Receipt Date: 20220615
  Transmission Date: 20220721
  Serious: Yes (Hospitalization, Other)
  Sender: FDA-Public Use
  Company Number: IT-NOVARTISPH-NVSC2022IT018546

PATIENT
  Age: 68 Year
  Sex: Male

DRUGS (5)
  1. AZITHROMYCIN DIHYDRATE [Suspect]
     Active Substance: AZITHROMYCIN DIHYDRATE
     Indication: COVID-19
     Dosage: 500 MG, QD
     Route: 065
  2. CANDESARTAN [Suspect]
     Active Substance: CANDESARTAN
     Indication: Hypertension
     Dosage: 32 MG, UNKNOWN
     Route: 065
  3. INSULIN LISPRO [Suspect]
     Active Substance: INSULIN LISPRO
     Indication: Hyperglycaemia
     Dosage: 6/8/8 UI, TID (3/DAY)
     Route: 065
  4. ENOXAPARIN [Suspect]
     Active Substance: ENOXAPARIN
     Indication: COVID-19
     Dosage: 6000 IU, Q12H (6000 IU, BID (2/DAY))
     Route: 065
  5. METHYLPREDNISOLONE [Suspect]
     Active Substance: METHYLPREDNISOLONE
     Indication: COVID-19
     Dosage: 20 MG, Q12H (20 MG, BID (2/DAY))
     Route: 065

REACTIONS (8)
  - Acute right ventricular failure [Unknown]
  - Hemiplegia [Unknown]
  - Dyspnoea [Unknown]
  - Electrocardiogram ST segment elevation [Unknown]
  - Product use in unapproved indication [Unknown]
  - Off label use [Unknown]
  - Coronary artery stenosis [Unknown]
  - Cerebral ischaemia [Unknown]
